FAERS Safety Report 16987032 (Version 1)
Quarter: 2019Q4

REPORT INFORMATION
  Report Type: Spontaneous
  Country: GB (occurrence: GB)
  Receive Date: 20191102
  Receipt Date: 20191102
  Transmission Date: 20200122
  Serious: Yes (Other)
  Sender: FDA-Public Use
  Company Number: GB-TEVA-2019-GB-1130352

PATIENT
  Age: 8 Month
  Sex: Male
  Weight: 7 kg

DRUGS (3)
  1. AMOXICILLIN. [Suspect]
     Active Substance: AMOXICILLIN
     Dosage: 5ML SPOON.125MG/5ML, 15 ML
     Dates: start: 20190923, end: 20190930
  2. LEVETIRACETAM. [Concomitant]
     Active Substance: LEVETIRACETAM
     Dosage: AS PER PAEDIATRICIAN, 42 MG
     Dates: start: 20190809
  3. ERYTHROMYCIN ETHYLSUCCINATE. [Concomitant]
     Active Substance: ERYTHROMYCIN ETHYLSUCCINATE
     Dosage: 5ML SPOON, 20 ML
     Dates: start: 20190925, end: 20191002

REACTIONS (3)
  - Diarrhoea [Recovering/Resolving]
  - Dermatitis allergic [Recovering/Resolving]
  - Vomiting [Unknown]

NARRATIVE: CASE EVENT DATE: 20191004
